FAERS Safety Report 10697560 (Version 1)
Quarter: 2015Q1

REPORT INFORMATION
  Report Type: Spontaneous
  Country: US (occurrence: None)
  Receive Date: 20150107
  Receipt Date: 20150107
  Transmission Date: 20150721
  Serious: Yes (Death)
  Sender: FDA-Public Use
  Company Number: None

PATIENT
  Age: 56 Year
  Sex: Male

DRUGS (2)
  1. SUTENT [Suspect]
     Active Substance: SUNITINIB MALATE
     Indication: GASTROINTESTINAL CARCINOMA
     Dosage: SUTENT 37.5MG, DAILY, PO
     Route: 048
     Dates: start: 20140517, end: 20141224
  2. SUTENT [Suspect]
     Active Substance: SUNITINIB MALATE

REACTIONS (2)
  - Malignant neoplasm progression [None]
  - Gastrointestinal carcinoma [None]

NARRATIVE: CASE EVENT DATE: 20141224
